FAERS Safety Report 17687827 (Version 2)
Quarter: 2020Q3

REPORT INFORMATION
  Report Type: Spontaneous
  Country: US (occurrence: US)
  Receive Date: 20200421
  Receipt Date: 20200827
  Transmission Date: 20201102
  Serious: No
  Sender: FDA-Public Use
  Company Number: US-SA-2020SA101812

PATIENT

DRUGS (5)
  1. DOXYCYCLINE HYCLATE. [Concomitant]
     Active Substance: DOXYCYCLINE HYCLATE
  2. DULOXETINE. [Concomitant]
     Active Substance: DULOXETINE
  3. DUPIXENT [Suspect]
     Active Substance: DUPILUMAB
     Indication: DERMATITIS ATOPIC
     Dosage: 300 MG, QOW
     Route: 058
     Dates: start: 20190321
  4. PIMECROLIMUS. [Concomitant]
     Active Substance: PIMECROLIMUS
  5. SOLIFENACINE [SOLIFENACIN] [Concomitant]

REACTIONS (2)
  - Incorrect product administration duration [Unknown]
  - Dermatitis atopic [Not Recovered/Not Resolved]
